FAERS Safety Report 4919286-X (Version None)
Quarter: 2006Q1

REPORT INFORMATION
  Report Type: 
  Country: None (occurrence: None)
  Receive Date: 20060216
  Receipt Date: 20060208
  Transmission Date: 20060701
  Serious: Yes (Hospitalization)
  Sender: FDA-Public Use
  Company Number: 06-NIP00017

PATIENT
  Age: 42 Year
  Sex: Male
  Weight: 82 kg

DRUGS (5)
  1. NIPENT [Suspect]
     Indication: CHRONIC LYMPHOCYTIC LEUKAEMIA
     Dosage: 0.1905 MG/M2 (4 MG/M2, EVERY 3 WKS), INTRAVENOUS
     Route: 042
     Dates: start: 20050728, end: 20051122
  2. CYCLOPHOSPHAMIDE [Suspect]
     Indication: CHRONIC LYMPHOCYTIC LEUKAEMIA
     Dosage: 28.5714 MG/M2 (600 MG/M2, EVERY 3 WKS), INTRAVENOUS
     Route: 042
     Dates: start: 20050728, end: 20051122
  3. RITUXIMAB (RITUXMAB) (RITUXIMAB) [Suspect]
     Indication: CHRONIC LYMPHOCYTIC LEUKAEMIA
     Dosage: 17.8571 MG/M2 (375 MG/M2, EVERY 3 WKS), INTRAVENOUS
     Route: 042
     Dates: start: 20050818, end: 20051122
  4. ACYCLOVIR (ACICLOVIR) (ACICLOVIR) [Concomitant]
  5. BACTRIM (SULFAMETHOXAZOLE, TRIMETHOPRIM) (TABLETS) (SULFAMETHOXAZOLE, [Concomitant]

REACTIONS (2)
  - ANAEMIA [None]
  - APLASIA PURE RED CELL [None]
